FAERS Safety Report 8188428-8 (Version None)
Quarter: 2012Q1

REPORT INFORMATION
  Report Type: 
  Country: None (occurrence: None)
  Receive Date: 20120306
  Receipt Date: 20120227
  Transmission Date: 20120608
  Serious: Yes (Other)
  Sender: FDA-Public Use
  Company Number: PHHY2012BR017179

PATIENT
  Age: 72 Year
  Sex: Female

DRUGS (2)
  1. DIOVAN [Suspect]
     Indication: HYPERTENSION
     Dosage: 80 MG, ONE TABLET DAILY
     Dates: start: 20090601
  2. DIOVAN [Suspect]
     Dosage: 80 MG, TWO TABLETS DAILY

REACTIONS (6)
  - ARTHRITIS [None]
  - HYPERTENSION [None]
  - MUSCULOSKELETAL PAIN [None]
  - OSTEOARTHRITIS [None]
  - EMOTIONAL DISORDER [None]
  - CALCINOSIS [None]
